FAERS Safety Report 9618436 (Version 2)
Quarter: 2013Q4

REPORT INFORMATION
  Report Type: Spontaneous
  Country: US (occurrence: US)
  Receive Date: 20131014
  Receipt Date: 20131018
  Transmission Date: 20140711
  Serious: No
  Sender: FDA-Public Use
  Company Number: US-PFIZER INC-2013289835

PATIENT
  Sex: Male

DRUGS (1)
  1. NITROSTAT [Suspect]
     Indication: CHEST PAIN
     Dosage: 0.4 MG, AS NEEDED
     Route: 060

REACTIONS (2)
  - Product solubility abnormal [Unknown]
  - Wrong technique in drug usage process [Unknown]
